FAERS Safety Report 16004495 (Version 1)
Quarter: 2019Q1

REPORT INFORMATION
  Report Type: Spontaneous
  Country: GB (occurrence: GB)
  Receive Date: 20190226
  Receipt Date: 20190226
  Transmission Date: 20190418
  Serious: Yes (Life-Threatening, Hospitalization, Other)
  Sender: FDA-Public Use
  Company Number: GB-DEXPHARM-20190145

PATIENT
  Age: 56 Year
  Sex: Female

DRUGS (23)
  1. FOSFOMYCIN [Concomitant]
     Active Substance: FOSFOMYCIN
     Dates: start: 20190120
  2. ADIZEM [Concomitant]
     Active Substance: DILTIAZEM HYDROCHLORIDE
  3. GABAPENTIN. [Concomitant]
     Active Substance: GABAPENTIN
  4. FOLIC ACID. [Concomitant]
     Active Substance: FOLIC ACID
  5. CODEINE [Concomitant]
     Active Substance: CODEINE
  6. CHLORPHENAMINE [Concomitant]
     Active Substance: CHLORPHENIRAMINE MALEATE
  7. CYCLIZINE [Concomitant]
     Active Substance: CYCLIZINE
  8. NYSTATIN. [Concomitant]
     Active Substance: NYSTATIN
     Dosage: 100,000UNITS/ML
     Dates: start: 20190120, end: 20190127
  9. LEVOTHYROXINE SODIUM. [Concomitant]
     Active Substance: LEVOTHYROXINE SODIUM
  10. IBUPROFEN. [Concomitant]
     Active Substance: IBUPROFEN
  11. FLUCONAZOLE. [Suspect]
     Active Substance: FLUCONAZOLE
  12. METRONIDAZOLE. [Suspect]
     Active Substance: METRONIDAZOLE
     Dosage: 500MG/100ML INFUSION 100ML BAGS
     Dates: start: 20190128, end: 20190130
  13. LEVOTHYROXINE SODIUM. [Concomitant]
     Active Substance: LEVOTHYROXINE SODIUM
  14. MORPHINE SULFATE. [Concomitant]
     Active Substance: MORPHINE SULFATE
     Dosage: 10MG/5ML
  15. OMEPRAZOLE. [Suspect]
     Active Substance: OMEPRAZOLE
  16. METOCLOPRAMIDE. [Suspect]
     Active Substance: METOCLOPRAMIDE
     Dosage: 10MG/5ML ; IN TOTAL
  17. PARACETAMOL [Concomitant]
     Active Substance: ACETAMINOPHEN
  18. CASPOFUNGIN [Concomitant]
     Active Substance: CASPOFUNGIN
     Dosage: 10MG/5ML
     Dates: end: 20181102
  19. ONDANSETRON [Suspect]
     Active Substance: ONDANSETRON
     Dosage: 10MG/5ML ; AS NECESSARY
     Dates: start: 20190120, end: 20190131
  20. LINEZOLID. [Concomitant]
     Active Substance: LINEZOLID
     Dates: start: 20190125, end: 20190130
  21. TINZAPARIN SODIUM [Concomitant]
     Active Substance: TINZAPARIN SODIUM
     Dosage: 500UNITS/0.45ML SOLUTION FOR INJECTION PRE-FILLED
  22. VANCOMYCIN [Concomitant]
     Active Substance: VANCOMYCIN
     Dates: start: 20190130
  23. LEVOFLOXACIN. [Suspect]
     Active Substance: LEVOFLOXACIN
     Dates: start: 20190116

REACTIONS (1)
  - Electrocardiogram QT prolonged [Not Recovered/Not Resolved]
